FAERS Safety Report 9775060 (Version 1)
Quarter: 2013Q4

REPORT INFORMATION
  Report Type: Spontaneous
  Country: US (occurrence: US)
  Receive Date: 20131220
  Receipt Date: 20131220
  Transmission Date: 20140711
  Serious: No
  Sender: FDA-Public Use
  Company Number: US-PFIZER INC-2013361756

PATIENT
  Sex: Female

DRUGS (2)
  1. DETROL LA [Suspect]
     Indication: MICTURITION URGENCY
     Dosage: 4 MG, 1X/DAY
     Route: 048
     Dates: end: 20131212
  2. TRAMADOL [Concomitant]
     Dosage: UNK

REACTIONS (3)
  - Fibromyalgia [Unknown]
  - Herpes zoster [Unknown]
  - Stress [Unknown]
